FAERS Safety Report 9319063 (Version 1)
Quarter: 2013Q2

REPORT INFORMATION
  Report Type: Spontaneous
  Country: US (occurrence: None)
  Receive Date: 20130524
  Receipt Date: 20130524
  Transmission Date: 20140414
  Serious: Yes (Hospitalization, Other)
  Sender: FDA-Public Use
  Company Number: 20130227

PATIENT
  Age: 46 Year
  Sex: Female
  Weight: 44.45 kg

DRUGS (25)
  1. VENOFER (IRON SUCROSE INJECTION, USP) (2340-10) 20 MG/ML [Suspect]
     Indication: IRON DEFICIENCY ANAEMIA
     Dosage: 400 MG IVPB WEEKLY X 2 DOSES IVDRP
     Dates: start: 20130412, end: 20130429
  2. ANUCORT-HC SUPP [Concomitant]
  3. CYMBALTA [Concomitant]
  4. EMLA CREAM [Concomitant]
  5. FLUCONAZOLE [Concomitant]
  6. FLUOROMETHOLONE EYE DROPS [Concomitant]
  7. IPTRATROPIUM NEBULIZER [Concomitant]
  8. LEVAQUIN [Concomitant]
  9. NORCO [Concomitant]
  10. PAMIDRONATE DISODIUM INJECTION (0745-01) (PAMIDRONATE DISODIUM) [Concomitant]
  11. PREMARIN TOPICAL [Concomitant]
  12. PRENATAL VITAMIN [Concomitant]
  13. PROCTOZONE HC [Concomitant]
  14. PROTONIX [Concomitant]
  15. PULMICORT NEBULIZER [Concomitant]
  16. RAPAMUNE [Concomitant]
  17. SINGULAIR [Concomitant]
  18. SPIRONOLACTONE [Concomitant]
  19. TESSALON PERLES [Concomitant]
  20. TRAMADOL [Concomitant]
  21. VALTREX [Concomitant]
  22. XOPENEX NEBULIZER [Concomitant]
  23. ZOFRAN [Concomitant]
  24. PREDNISONE [Concomitant]
  25. ALBUMIN EYE DROPS [Concomitant]

REACTIONS (1)
  - Respiratory distress [None]
